FAERS Safety Report 7823494-8 (Version None)
Quarter: 2011Q4

REPORT INFORMATION
  Report Type: 
  Country: None (occurrence: None)
  Receive Date: 20111014
  Receipt Date: 20111010
  Transmission Date: 20120403
  Serious: Yes (Hospitalization, Other)
  Sender: FDA-Public Use
  Company Number: 201110888

PATIENT
  Age: 61 Year
  Sex: Male

DRUGS (2)
  1. LIORESAL [Suspect]
     Indication: MUSCLE SPASTICITY
     Dosage: SEE B5
  2. MORPHINE [Concomitant]

REACTIONS (2)
  - DEVICE RELATED INFECTION [None]
  - DEVICE MALFUNCTION [None]
